FAERS Safety Report 20202440 (Version 1)
Quarter: 2021Q4

REPORT INFORMATION
  Report Type: Other
  Country: CA (occurrence: CA)
  Receive Date: 20211217
  Receipt Date: 20211217
  Transmission Date: 20220303
  Serious: Yes (Other)
  Sender: FDA-Public Use
  Company Number: CA-CELLTRION INC.-2021CA016918

PATIENT

DRUGS (22)
  1. RITUXIMAB [Suspect]
     Active Substance: RITUXIMAB
     Indication: Rheumatoid arthritis
     Dosage: 1000 MG
     Route: 042
  2. ACETAMINOPHEN [Concomitant]
     Active Substance: ACETAMINOPHEN
     Dosage: 1000 MG, 1 EVERY 6 HOURS
     Route: 065
  3. ALENDRONATE SODIUM [Concomitant]
     Active Substance: ALENDRONATE SODIUM
  4. AMITRIPTYLINE [Concomitant]
     Active Substance: AMITRIPTYLINE
     Dosage: 10 MG
     Route: 065
  5. BENADRYL [Concomitant]
     Active Substance: DIPHENHYDRAMINE HYDROCHLORIDE
     Dosage: 50 MILLIGRAM
     Route: 065
  6. CANDESARTAN [Concomitant]
     Active Substance: CANDESARTAN
  7. DENOSUMAB [Concomitant]
     Active Substance: DENOSUMAB
     Route: 065
  8. FERROUS SULFATE [Concomitant]
     Active Substance: FERROUS SULFATE
     Dosage: 300 MG
     Route: 065
  9. FUROSEMIDE [Concomitant]
     Active Substance: FUROSEMIDE
     Dosage: 20 MG, 1 EVERY 1 DAYS
     Route: 065
  10. GABAPENTIN [Concomitant]
     Active Substance: GABAPENTIN
  11. IRBESARTAN [Concomitant]
     Active Substance: IRBESARTAN
     Dosage: 150 MG
     Route: 065
  12. KADIAN [Concomitant]
     Active Substance: MORPHINE SULFATE
     Dosage: 20 MG, 2 EVERY 1 DAYS
     Route: 065
  13. LEFLUNOMIDE [Concomitant]
     Active Substance: LEFLUNOMIDE
     Dosage: 20 MG, 1 EVERY 1 DAYS
     Route: 065
  14. MORPHINE [Concomitant]
     Active Substance: MORPHINE
     Dosage: 1 EVERY 4 HOURS
     Route: 065
  15. NABILONE [Concomitant]
     Active Substance: NABILONE
     Dosage: 0.5 MG, 2 EVERY 1 DAY
     Route: 065
  16. PREDNISONE [Concomitant]
     Active Substance: PREDNISONE
     Dosage: 6 MG
     Route: 048
  17. PREGABALIN [Concomitant]
     Active Substance: PREGABALIN
     Dosage: 300 MG, 3 EVERY 1 DAYS
     Route: 065
  18. SEPTRA [Concomitant]
     Active Substance: SULFAMETHOXAZOLE\TRIMETHOPRIM
  19. SERTRALINE [Concomitant]
     Active Substance: SERTRALINE HYDROCHLORIDE
     Dosage: 25 MILLIGRAM
     Route: 065
  20. SOLU-MEDROL [Concomitant]
     Active Substance: METHYLPREDNISOLONE SODIUM SUCCINATE
     Dosage: 100 MG
     Route: 042
  21. TYLENOL [Concomitant]
     Active Substance: ACETAMINOPHEN
     Dosage: 650 MILLIGRAM
     Route: 065
  22. VITAMIN D3 [Concomitant]
     Active Substance: CHOLECALCIFEROL
     Route: 065

REACTIONS (35)
  - Aspiration joint abnormal [Unknown]
  - Cataract [Unknown]
  - Dry eye [Unknown]
  - Dry mouth [Unknown]
  - Fall [Unknown]
  - Ill-defined disorder [Unknown]
  - Joint dislocation [Unknown]
  - Joint effusion [Unknown]
  - Joint instability [Unknown]
  - Joint swelling [Unknown]
  - Neck pain [Unknown]
  - Osteoporosis [Unknown]
  - Pain in extremity [Unknown]
  - Peripheral swelling [Unknown]
  - Peroneal nerve palsy [Unknown]
  - Pollakiuria [Unknown]
  - Poor quality sleep [Unknown]
  - Rotator cuff syndrome [Unknown]
  - Sleep disorder [Unknown]
  - Somnolence [Unknown]
  - Spinal stenosis [Unknown]
  - Stress fracture [Unknown]
  - Tendon rupture [Unknown]
  - Vertebral foraminal stenosis [Unknown]
  - White blood cells urine positive [Unknown]
  - Arthralgia [Unknown]
  - Asthenia [Unknown]
  - Fatigue [Unknown]
  - Gait disturbance [Unknown]
  - Hypertension [Unknown]
  - Musculoskeletal disorder [Unknown]
  - Oedema peripheral [Unknown]
  - Osteoarthritis [Unknown]
  - Sciatica [Unknown]
  - Spinal osteoarthritis [Unknown]
